FAERS Safety Report 7969204-5 (Version None)
Quarter: 2011Q4

REPORT INFORMATION
  Report Type: 
  Country: None (occurrence: None)
  Receive Date: 20111209
  Receipt Date: 20111201
  Transmission Date: 20120403
  Serious: Yes (Death)
  Sender: FDA-Public Use
  Company Number: UG-B.I. PHARMACEUTICALS,INC./RIDGEFIELD-2011-EU-00869GD

PATIENT
  Sex: Female

DRUGS (3)
  1. NEVIRAPINE [Suspect]
     Indication: PROPHYLAXIS
  2. NEVIRAPINE [Suspect]
     Indication: HIV INFECTION
     Dosage: 200 MG
  3. NEVIRAPINE [Suspect]
     Indication: HUMAN IMMUNODEFICIENCY VIRUS TRANSMISSION

REACTIONS (1)
  - MENINGITIS CRYPTOCOCCAL [None]
